FAERS Safety Report 4638807-8 (Version None)
Quarter: 2005Q2

REPORT INFORMATION
  Report Type: 
  Country: None (occurrence: None)
  Receive Date: 20050419
  Receipt Date: 20050131
  Transmission Date: 20051028
  Serious: Yes (Death)
  Sender: FDA-Public Use
  Company Number: 200510236EU

PATIENT
  Age: 73 Year
  Sex: Male

DRUGS (2)
  1. RIFATER [Suspect]
     Indication: TUBERCULOSIS
     Route: 048
     Dates: start: 20041204, end: 20041205
  2. ETHAMBUTOL HCL [Concomitant]
     Indication: TUBERCULOSIS
     Dates: start: 20051204

REACTIONS (1)
  - ANAEMIA HAEMOLYTIC AUTOIMMUNE [None]
